FAERS Safety Report 6408181-5 (Version None)
Quarter: 2009Q4

REPORT INFORMATION
  Report Type: 
  Country: None (occurrence: None)
  Receive Date: 20091021
  Receipt Date: 20091012
  Transmission Date: 20100525
  Serious: Yes (Other)
  Sender: FDA-Public Use
  Company Number: US-AMGEN-QUU364952

PATIENT
  Sex: Male
  Weight: 121.2 kg

DRUGS (1)
  1. ENBREL [Suspect]
     Indication: RHEUMATOID ARTHRITIS
     Route: 058
     Dates: start: 20030101

REACTIONS (5)
  - FALL [None]
  - FATIGUE [None]
  - INJECTION SITE PAIN [None]
  - JOINT INJURY [None]
  - RHEUMATOID ARTHRITIS [None]
